FAERS Safety Report 19779901 (Version 6)
Quarter: 2022Q4

REPORT INFORMATION
  Report Type: Spontaneous
  Country: IT (occurrence: IT)
  Receive Date: 20210902
  Receipt Date: 20221031
  Transmission Date: 20230112
  Serious: Yes (Other)
  Sender: FDA-Public Use
  Company Number: None

PATIENT
  Age: 56 Year
  Sex: Female

DRUGS (36)
  1. FLUVOXAMINE MALEATE [Interacting]
     Active Substance: FLUVOXAMINE MALEATE
     Indication: COVID-19 pneumonia
     Dates: start: 2020, end: 2020
  2. METHYLPREDNISOLONE [Suspect]
     Active Substance: METHYLPREDNISOLONE
     Indication: COVID-19
     Dates: start: 2020, end: 2020
  3. IOPAMIDOL [Interacting]
     Active Substance: IOPAMIDOL
     Indication: COVID-19 pneumonia
     Route: 042
     Dates: start: 2020, end: 2020
  4. LOPINAVIR\RITONAVIR [Concomitant]
     Active Substance: LOPINAVIR\RITONAVIR
     Indication: COVID-19 pneumonia
     Dosage: ()
     Dates: start: 2020, end: 2020
  5. FUROSEMIDE [Suspect]
     Active Substance: FUROSEMIDE
     Indication: COVID-19
     Dates: start: 2020, end: 2020
  6. LEVOFLOXACIN [Concomitant]
     Active Substance: LEVOFLOXACIN
     Indication: COVID-19
     Dates: start: 2020, end: 2020
  7. HALOPERIDOL [Interacting]
     Active Substance: HALOPERIDOL
     Indication: COVID-19
     Dates: start: 2020, end: 2020
  8. OXYGEN [Concomitant]
     Active Substance: OXYGEN
  9. PIPERACILLIN AND TAZOBACTAM [Interacting]
     Active Substance: PIPERACILLIN SODIUM\TAZOBACTAM SODIUM
     Indication: COVID-19 pneumonia
     Dates: start: 2020, end: 2020
  10. PROMAZINE [Interacting]
     Active Substance: PROMAZINE
     Indication: COVID-19
     Dates: start: 2020, end: 2020
  11. ENOXAPARIN [Suspect]
     Active Substance: ENOXAPARIN
     Indication: COVID-19
     Dates: start: 2020, end: 2020
  12. LORAZEPAM [Interacting]
     Active Substance: LORAZEPAM
     Indication: COVID-19
     Dates: start: 2020, end: 2020
  13. HYDROXYZINE [Concomitant]
     Active Substance: HYDROXYZINE HYDROCHLORIDE
     Indication: COVID-19
     Dates: start: 2020, end: 2020
  14. HYDROXYCHLOROQUINE [Concomitant]
     Active Substance: HYDROXYCHLOROQUINE
     Indication: COVID-19 pneumonia
     Dates: start: 2020, end: 2020
  15. IOPROMIDE [Suspect]
     Active Substance: IOPROMIDE
     Indication: COVID-19 pneumonia
     Dates: start: 2020, end: 2020
  16. MIDAZOLAM [Suspect]
     Active Substance: MIDAZOLAM
     Indication: COVID-19 pneumonia
     Dates: start: 2020, end: 2020
  17. ETHACRYNIC ACID [Suspect]
     Active Substance: ETHACRYNIC ACID
     Indication: Product used for unknown indication
  18. TIGECYCLINE [Suspect]
     Active Substance: TIGECYCLINE
     Indication: Product used for unknown indication
  19. LOPINAVIR [Suspect]
     Active Substance: LOPINAVIR
  20. ACETAZOLAMIDE [Suspect]
     Active Substance: ACETAZOLAMIDE
     Indication: Product used for unknown indication
     Dates: start: 2020, end: 2020
  21. NOREPINEPHRINE [Suspect]
     Active Substance: NOREPINEPHRINE
     Indication: Product used for unknown indication
  22. QUETIAPINE [Suspect]
     Active Substance: QUETIAPINE
     Indication: Product used for unknown indication
     Dates: start: 2020, end: 2020
  23. ANAKINRA [Suspect]
     Active Substance: ANAKINRA
  24. OMEPRAZOLE [Suspect]
     Active Substance: OMEPRAZOLE
     Indication: Product used for unknown indication
     Dates: start: 2020, end: 2020
  25. LINEZOLID [Suspect]
     Active Substance: LINEZOLID
     Dates: start: 2020
  26. DAPTOMYCIN [Suspect]
     Active Substance: DAPTOMYCIN
     Indication: Product used for unknown indication
     Dates: start: 2020, end: 2020
  27. ALPROSTADIL [Suspect]
     Active Substance: ALPROSTADIL
     Indication: Product used for unknown indication
  28. ASPIRIN [Interacting]
     Active Substance: ASPIRIN
  29. LABETALOL [Suspect]
     Active Substance: LABETALOL\LABETALOL HYDROCHLORIDE
     Indication: Product used for unknown indication
  30. CLONIDINE [Suspect]
     Active Substance: CLONIDINE
     Indication: Product used for unknown indication
     Dates: start: 2020, end: 2020
  31. PREDNISONE [Suspect]
     Active Substance: PREDNISONE
     Indication: Product used for unknown indication
     Dates: start: 2020, end: 2020
  32. PIPERACILLIN [Suspect]
     Active Substance: PIPERACILLIN
     Dates: start: 2020, end: 2020
  33. FLUVOXAMINE [Interacting]
     Active Substance: FLUVOXAMINE
     Indication: COVID-19 pneumonia
     Route: 048
     Dates: start: 2020, end: 2020
  34. FLUVOXAMINE [Suspect]
     Active Substance: FLUVOXAMINE
     Indication: Product used for unknown indication
     Dates: start: 2020, end: 2020
  35. PROPOFOL [Suspect]
     Active Substance: PROPOFOL
  36. LEVOFLOXACIN [Interacting]
     Active Substance: LEVOFLOXACIN
     Indication: COVID-19

REACTIONS (5)
  - Drug reaction with eosinophilia and systemic symptoms [Recovered/Resolved]
  - Off label use [Unknown]
  - Drug hypersensitivity [Unknown]
  - Drug interaction [Unknown]
  - Rash maculo-papular [Unknown]

NARRATIVE: CASE EVENT DATE: 20200101
